FAERS Safety Report 11286743 (Version 1)
Quarter: 2015Q3

REPORT INFORMATION
  Report Type: Report from Study
  Country: DE (occurrence: DE)
  Receive Date: 20150721
  Receipt Date: 20150721
  Transmission Date: 20151125
  Serious: Yes (Hospitalization)
  Sender: FDA-Public Use
  Company Number: DE-AMGEN-DEUSL2015071844

PATIENT
  Age: 60 Year
  Sex: Male
  Weight: 95 kg

DRUGS (4)
  1. NATRIUMFOLINAT [Suspect]
     Active Substance: FOLATE SODIUM
     Indication: COLON CANCER
     Dosage: UNK
     Route: 065
  2. FU [Suspect]
     Active Substance: FLUOROURACIL
     Indication: COLON CANCER
     Dosage: UNK
     Route: 065
  3. OXALIPLATIN. [Suspect]
     Active Substance: OXALIPLATIN
     Indication: COLON CANCER
     Dosage: UNK
     Route: 065
  4. VECTIBIX [Suspect]
     Active Substance: PANITUMUMAB
     Indication: COLON CANCER
     Dosage: 570 UNK, UNK
     Route: 065
     Dates: start: 20150218

REACTIONS (3)
  - Inflammation [Not Recovered/Not Resolved]
  - Rash [Recovered/Resolved]
  - Rash [None]

NARRATIVE: CASE EVENT DATE: 20150304
